FAERS Safety Report 13672054 (Version 1)
Quarter: 2017Q2

REPORT INFORMATION
  Report Type: Spontaneous
  Country: GB (occurrence: GB)
  Receive Date: 20170621
  Receipt Date: 20170621
  Transmission Date: 20170830
  Serious: Yes (Other)
  Sender: FDA-Public Use
  Company Number: GB-TEVA-777228ACC

PATIENT
  Age: 57 Year
  Sex: Male
  Weight: 66.67 kg

DRUGS (4)
  1. GALEN LTD CO-CODAMOL [Concomitant]
  2. CITALOPRAM HYDROBROMIDE. [Suspect]
     Active Substance: CITALOPRAM HYDROBROMIDE
     Indication: DEPRESSION
     Route: 048
     Dates: start: 20140101, end: 20170520
  3. GABAPENTIN. [Concomitant]
     Active Substance: GABAPENTIN
  4. BRISTOL LABS TRAMADOL [Concomitant]

REACTIONS (1)
  - Nasal odour [Recovered/Resolved]

NARRATIVE: CASE EVENT DATE: 20140101
